FAERS Safety Report 18487508 (Version 1)
Quarter: 2020Q4

REPORT INFORMATION
  Report Type: Spontaneous
  Country: JP (occurrence: JP)
  Receive Date: 20201111
  Receipt Date: 20201111
  Transmission Date: 20210114
  Serious: Yes (Hospitalization, Other)
  Sender: FDA-Public Use
  Company Number: JP-LUPIN PHARMACEUTICALS INC.-2020-07412

PATIENT
  Age: 72 Year
  Sex: Male

DRUGS (5)
  1. VANCOMYCIN [Suspect]
     Active Substance: VANCOMYCIN
     Indication: CNS VENTRICULITIS
     Dosage: 1.5 GRAM, QD (FORMULATION: INJECTION)
     Route: 065
  2. HEPARIN [Concomitant]
     Active Substance: HEPARIN SODIUM
     Indication: ANTICOAGULANT THERAPY
     Dosage: 3 MILLIGRAM/KILOGRAM, UNK
     Route: 042
  3. AMPICILLIN [Concomitant]
     Active Substance: AMPICILLIN
     Indication: CNS VENTRICULITIS
     Dosage: 12 GRAM, QD (STOPPED)
     Route: 065
  4. MEROPENEM. [Concomitant]
     Active Substance: MEROPENEM
     Indication: CNS VENTRICULITIS
     Dosage: 6 GRAM, QD (STOPPED)
     Route: 065
  5. DEXAMETHASONE. [Concomitant]
     Active Substance: DEXAMETHASONE
     Indication: CNS VENTRICULITIS
     Dosage: 10 MILLIGRAM, QD
     Route: 065

REACTIONS (1)
  - Renal impairment [Unknown]
